FAERS Safety Report 23124944 (Version 1)
Quarter: 2023Q4

REPORT INFORMATION
  Report Type: Spontaneous
  Country: US (occurrence: None)
  Receive Date: 20231030
  Receipt Date: 20231030
  Transmission Date: 20240109
  Serious: Yes (Death)
  Sender: FDA-Public Use
  Company Number: None

PATIENT
  Sex: Male

DRUGS (14)
  1. ABIRATERONE ACETATE [Suspect]
     Active Substance: ABIRATERONE ACETATE
     Indication: Bone cancer
     Dosage: 1000 MG(4 TABLETS)
     Route: 048
     Dates: start: 20221208
  2. ASPIRIN LOW TAB 81MG [Concomitant]
  3. ATORVASTATIN TAB 40MG [Concomitant]
  4. CYCLOBENZAPR TAB 10MG [Concomitant]
  5. FLOMAX CAP 0.4MG [Concomitant]
  6. HYDROCODONE TAB 30MG ER [Concomitant]
  7. LISINOPRIL TAB 40MG [Concomitant]
  8. LORAZEPAM TAB 0.5MG [Concomitant]
  9. METOPROL TAR TAB 25MG [Concomitant]
  10. MIRALAX POW [Concomitant]
  11. MORPHINE SUL TAB 30MG [Concomitant]
  12. ONDANSETRON TAB 8MG [Concomitant]
  13. PERCOCET TAB 5-325MG [Concomitant]
  14. PREDNISONE TAB 10MG [Concomitant]

REACTIONS (1)
  - Death [None]
